FAERS Safety Report 14299745 (Version 1)
Quarter: 2017Q4

REPORT INFORMATION
  Report Type: Report from Study
  Country: DK (occurrence: DK)
  Receive Date: 20171219
  Receipt Date: 20171219
  Transmission Date: 20180321
  Serious: Yes (Other)
  Sender: FDA-Public Use
  Company Number: DK-ROCHE-2041243

PATIENT

DRUGS (4)
  1. RITUXIMAB. [Suspect]
     Active Substance: RITUXIMAB
     Indication: ANKYLOSING SPONDYLITIS
     Route: 065
  2. RITUXIMAB. [Suspect]
     Active Substance: RITUXIMAB
     Indication: PSORIATIC ARTHROPATHY
  3. TOCILIZUMAB. [Suspect]
     Active Substance: TOCILIZUMAB
     Indication: ANKYLOSING SPONDYLITIS
  4. TOCILIZUMAB. [Suspect]
     Active Substance: TOCILIZUMAB
     Indication: PSORIATIC ARTHROPATHY
     Route: 065

REACTIONS (6)
  - Off label use [Unknown]
  - Discomfort [Unknown]
  - Systemic lupus erythematosus [Unknown]
  - Intentional product use issue [Unknown]
  - Hypersensitivity [Unknown]
  - Infection [Unknown]
